FAERS Safety Report 19646937 (Version 3)
Quarter: 2021Q3

REPORT INFORMATION
  Report Type: Spontaneous
  Country: US (occurrence: US)
  Receive Date: 20210802
  Receipt Date: 20210909
  Transmission Date: 20211014
  Serious: Yes (Death, Other)
  Sender: FDA-Public Use
  Company Number: US-PFIZER INC-202100924001

PATIENT
  Age: 82 Year
  Sex: Male

DRUGS (1)
  1. VYNDAMAX [Suspect]
     Active Substance: TAFAMIDIS
     Indication: AMYLOIDOSIS
     Dosage: 61 MG, UNKNOWN FREQUENCY
     Dates: start: 20200819

REACTIONS (2)
  - Off label use [Unknown]
  - Cardiac amyloidosis [Fatal]

NARRATIVE: CASE EVENT DATE: 20200819
